FAERS Safety Report 15455200 (Version 3)
Quarter: 2018Q4

REPORT INFORMATION
  Report Type: Report from Study
  Country: US (occurrence: US)
  Receive Date: 20181002
  Receipt Date: 20181105
  Transmission Date: 20190204
  Serious: Yes (Hospitalization)
  Sender: FDA-Public Use
  Company Number: US-MALLINCKRODT-T201803869

PATIENT
  Age: 72 Year
  Sex: Male

DRUGS (9)
  1. REPOSITORY CORTICOTROPIN INJECTION [Suspect]
     Active Substance: CORTICOTROPIN
     Dosage: 40 UNITS TWICE WEEKLY
     Route: 058
     Dates: start: 20181001
  2. MINOXIDIL. [Concomitant]
     Active Substance: MINOXIDIL
     Indication: PRODUCT USED FOR UNKNOWN INDICATION
     Dosage: 5 MG, QD
     Route: 065
  3. POTASSIUM [Concomitant]
     Active Substance: POTASSIUM
     Indication: PRODUCT USED FOR UNKNOWN INDICATION
     Dosage: UNK
     Route: 065
  4. TORSEMIDE. [Concomitant]
     Active Substance: TORSEMIDE
     Indication: PRODUCT USED FOR UNKNOWN INDICATION
     Dosage: 10 MG, BID
     Route: 065
  5. REPOSITORY CORTICOTROPIN INJECTION [Suspect]
     Active Substance: CORTICOTROPIN
     Indication: NEPHROTIC SYNDROME
     Dosage: 80 UNITS / 1 ML, 2 TIMES PER WEEK MONDAY. THURSDAY
     Route: 030
     Dates: start: 2018, end: 2018
  6. REPOSITORY CORTICOTROPIN INJECTION [Suspect]
     Active Substance: CORTICOTROPIN
     Indication: PROTEINURIA
     Dosage: 40 UNITS TWICE A WEEK FOR 4 WEEKS
     Route: 058
     Dates: start: 20180814, end: 201808
  7. REPOSITORY CORTICOTROPIN INJECTION [Suspect]
     Active Substance: CORTICOTROPIN
     Dosage: 80 UNITS / 1 ML,  2 TIMES PER WEEK (MONDAY/THURSDAY)
     Route: 030
     Dates: start: 2018, end: 20181015
  8. REPOSITORY CORTICOTROPIN INJECTION [Suspect]
     Active Substance: CORTICOTROPIN
     Indication: GLOMERULONEPHRITIS MEMBRANOUS
     Dosage: 80 UNITS TWICE WEEKLY (MONDAY/THURSDAY)
     Route: 030
     Dates: start: 20180820, end: 2018
  9. AMLODIPINE [Concomitant]
     Active Substance: AMLODIPINE BESYLATE
     Indication: PRODUCT USED FOR UNKNOWN INDICATION
     Dosage: 5 MG, BID
     Route: 065

REACTIONS (18)
  - Nasopharyngitis [Not Recovered/Not Resolved]
  - Atrial fibrillation [Recovering/Resolving]
  - Swelling face [Unknown]
  - Eye swelling [Unknown]
  - Peripheral swelling [Unknown]
  - Heart rate increased [Recovering/Resolving]
  - Fluid imbalance [Recovering/Resolving]
  - Blood pressure increased [Recovering/Resolving]
  - Abdominal pain upper [Unknown]
  - Blood glucose increased [Unknown]
  - Incorrect dose administered [Unknown]
  - Blood potassium decreased [Recovering/Resolving]
  - Mood altered [Unknown]
  - Weight fluctuation [Recovering/Resolving]
  - Fear of injection [Unknown]
  - Diarrhoea [Unknown]
  - Dyspnoea [Unknown]
  - Appetite disorder [Unknown]

NARRATIVE: CASE EVENT DATE: 2018
